FAERS Safety Report 7608449-0 (Version None)
Quarter: 2011Q3

REPORT INFORMATION
  Report Type: 
  Country: None (occurrence: None)
  Receive Date: 20110714
  Receipt Date: 20110705
  Transmission Date: 20111222
  Serious: Yes (Other)
  Sender: FDA-Public Use
  Company Number: FR-ELI_LILLY_AND_COMPANY-FR201107000737

PATIENT
  Sex: Female

DRUGS (3)
  1. MEDIATOR [Concomitant]
     Indication: OVERWEIGHT
     Dosage: 2 DF, UNK
     Route: 048
     Dates: start: 19950101, end: 20070101
  2. RAMIPRIL [Concomitant]
  3. PROZAC [Suspect]
     Indication: DEPRESSION
     Dosage: UNK
     Route: 048

REACTIONS (1)
  - MITRAL VALVE INCOMPETENCE [None]
